FAERS Safety Report 6689183-0 (Version None)
Quarter: 2010Q2

REPORT INFORMATION
  Report Type: 
  Country: None (occurrence: None)
  Receive Date: 20100415
  Receipt Date: 20100401
  Transmission Date: 20101027
  Serious: Yes (Hospitalization)
  Sender: FDA-Public Use
  Company Number: CLOF-10510

PATIENT
  Age: 9 Year
  Sex: Female
  Weight: 24.3 kg

DRUGS (31)
  1. CLOFARABINE (CLOFARABINE) [Suspect]
     Indication: ACUTE LYMPHOCYTIC LEUKAEMIA
     Dosage: 30 MG/M2, INTRAVENOUS; 20 MG/M2, INTRAVENOUS; 20 MG/M2, QD, INTRAVENOUS; 20 MG, QD, INTRAVENOUS
     Route: 042
     Dates: start: 20061129, end: 20061202
  2. CLOFARABINE (CLOFARABINE) [Suspect]
     Indication: ACUTE LYMPHOCYTIC LEUKAEMIA
     Dosage: 30 MG/M2, INTRAVENOUS; 20 MG/M2, INTRAVENOUS; 20 MG/M2, QD, INTRAVENOUS; 20 MG, QD, INTRAVENOUS
     Route: 042
     Dates: start: 20061226, end: 20061229
  3. CLOFARABINE (CLOFARABINE) [Suspect]
     Indication: ACUTE LYMPHOCYTIC LEUKAEMIA
     Dosage: 30 MG/M2, INTRAVENOUS; 20 MG/M2, INTRAVENOUS; 20 MG/M2, QD, INTRAVENOUS; 20 MG, QD, INTRAVENOUS
     Route: 042
     Dates: start: 20070123, end: 20070126
  4. CLOFARABINE (CLOFARABINE) [Suspect]
     Indication: ACUTE LYMPHOCYTIC LEUKAEMIA
     Dosage: 30 MG/M2, INTRAVENOUS; 20 MG/M2, INTRAVENOUS; 20 MG/M2, QD, INTRAVENOUS; 20 MG, QD, INTRAVENOUS
     Route: 042
     Dates: start: 20070226, end: 20070301
  5. CLOFARABINE (CLOFARABINE) [Suspect]
     Indication: ACUTE LYMPHOCYTIC LEUKAEMIA
     Dosage: 30 MG/M2, INTRAVENOUS; 20 MG/M2, INTRAVENOUS; 20 MG/M2, QD, INTRAVENOUS; 20 MG, QD, INTRAVENOUS
     Route: 042
     Dates: start: 20070412, end: 20070415
  6. ETOPOSIDE [Suspect]
     Indication: ACUTE LYMPHOCYTIC LEUKAEMIA
     Dosage: 106 MG, QD, INTRAVENOUS; 106 MG,; 100 MG, INTRAVENOUS; 100 MG, QD, INTRAVENOUS
     Route: 042
     Dates: start: 20061129, end: 20061202
  7. ETOPOSIDE [Suspect]
     Indication: ACUTE LYMPHOCYTIC LEUKAEMIA
     Dosage: 106 MG, QD, INTRAVENOUS; 106 MG,; 100 MG, INTRAVENOUS; 100 MG, QD, INTRAVENOUS
     Route: 042
     Dates: start: 20061206, end: 20061206
  8. ETOPOSIDE [Suspect]
     Indication: ACUTE LYMPHOCYTIC LEUKAEMIA
     Dosage: 106 MG, QD, INTRAVENOUS; 106 MG,; 100 MG, INTRAVENOUS; 100 MG, QD, INTRAVENOUS
     Route: 042
     Dates: start: 20061226, end: 20061229
  9. ETOPOSIDE [Suspect]
     Indication: ACUTE LYMPHOCYTIC LEUKAEMIA
     Dosage: 106 MG, QD, INTRAVENOUS; 106 MG,; 100 MG, INTRAVENOUS; 100 MG, QD, INTRAVENOUS
     Route: 042
     Dates: start: 20070123, end: 20070126
  10. ETOPOSIDE [Suspect]
     Indication: ACUTE LYMPHOCYTIC LEUKAEMIA
     Dosage: 106 MG, QD, INTRAVENOUS; 106 MG,; 100 MG, INTRAVENOUS; 100 MG, QD, INTRAVENOUS
     Route: 042
     Dates: start: 20070226, end: 20070301
  11. ETOPOSIDE [Suspect]
     Indication: ACUTE LYMPHOCYTIC LEUKAEMIA
     Dosage: 106 MG, QD, INTRAVENOUS; 106 MG,; 100 MG, INTRAVENOUS; 100 MG, QD, INTRAVENOUS
     Route: 042
     Dates: start: 20070413, end: 20070416
  12. CYCLOPHOSPHAMIDE [Suspect]
     Indication: ACUTE LYMPHOCYTIC LEUKAEMIA
     Dosage: 470 MG, QD, INTRAVENOUS; 470 MG,; 440 MG, INTRAVENOUS; 440 MG, QD, INTRAVENOUS
     Route: 042
     Dates: start: 20061129, end: 20061202
  13. CYCLOPHOSPHAMIDE [Suspect]
     Indication: ACUTE LYMPHOCYTIC LEUKAEMIA
     Dosage: 470 MG, QD, INTRAVENOUS; 470 MG,; 440 MG, INTRAVENOUS; 440 MG, QD, INTRAVENOUS
     Route: 042
     Dates: start: 20061206, end: 20061206
  14. CYCLOPHOSPHAMIDE [Suspect]
     Indication: ACUTE LYMPHOCYTIC LEUKAEMIA
     Dosage: 470 MG, QD, INTRAVENOUS; 470 MG,; 440 MG, INTRAVENOUS; 440 MG, QD, INTRAVENOUS
     Route: 042
     Dates: start: 20061226, end: 20061229
  15. CYCLOPHOSPHAMIDE [Suspect]
     Indication: ACUTE LYMPHOCYTIC LEUKAEMIA
     Dosage: 470 MG, QD, INTRAVENOUS; 470 MG,; 440 MG, INTRAVENOUS; 440 MG, QD, INTRAVENOUS
     Route: 042
     Dates: start: 20070123, end: 20070126
  16. CYCLOPHOSPHAMIDE [Suspect]
     Indication: ACUTE LYMPHOCYTIC LEUKAEMIA
     Dosage: 470 MG, QD, INTRAVENOUS; 470 MG,; 440 MG, INTRAVENOUS; 440 MG, QD, INTRAVENOUS
     Route: 042
     Dates: start: 20070226, end: 20070301
  17. CYCLOPHOSPHAMIDE [Suspect]
     Indication: ACUTE LYMPHOCYTIC LEUKAEMIA
     Dosage: 470 MG, QD, INTRAVENOUS; 470 MG,; 440 MG, INTRAVENOUS; 440 MG, QD, INTRAVENOUS
     Route: 042
     Dates: start: 20070413, end: 20070416
  18. CHLORHEXIDINE (CHLORHEXIDINE) [Concomitant]
  19. NYSTATIN [Concomitant]
  20. SULFATRIMETHAZOLE-TRIMETHOPRIME [Concomitant]
  21. AMIKACIN [Concomitant]
  22. DIPHENHYDRATE [Concomitant]
  23. FILGRASTIM (FILGRASTIM) [Concomitant]
  24. FLUCONAZOLE [Concomitant]
  25. HEPARIN [Concomitant]
  26. MEROPENEM [Concomitant]
  27. POTASSIUM CHLORIDE [Concomitant]
  28. SODIUM CLORIDE SPRAY [Concomitant]
  29. VANCOMYCIN [Concomitant]
  30. VORICONAZOLE [Concomitant]
  31. ACETAMINOPHEN [Concomitant]

REACTIONS (15)
  - ATELECTASIS [None]
  - BK VIRUS INFECTION [None]
  - CULTURE STOOL POSITIVE [None]
  - CYSTITIS HAEMORRHAGIC [None]
  - DIARRHOEA [None]
  - FEBRILE NEUTROPENIA [None]
  - GASTROINTESTINAL CANDIDIASIS [None]
  - HAEMATURIA [None]
  - INFLAMMATORY BOWEL DISEASE [None]
  - MUCOSAL INFLAMMATION [None]
  - ORAL CANDIDIASIS [None]
  - ORAL PAIN [None]
  - PANCREATITIS [None]
  - SINUSITIS [None]
  - SUPRAPUBIC PAIN [None]
